FAERS Safety Report 4689852-8 (Version None)
Quarter: 2005Q2

REPORT INFORMATION
  Report Type: 
  Country: None (occurrence: None)
  Receive Date: 20050614
  Receipt Date: 20050602
  Transmission Date: 20051028
  Serious: Yes (Life-Threatening, Hospitalization)
  Sender: FDA-Public Use
  Company Number: US-JNJFOC-20050602634

PATIENT
  Sex: Male
  Weight: 85.73 kg

DRUGS (4)
  1. IBUPROFEN [Suspect]
     Indication: PAIN
     Dosage: 600-800MG TID
  2. CLOZAPINE [Suspect]
     Indication: AFFECTIVE DISORDER
     Route: 049
  3. DEPAKOTE [Concomitant]
  4. ZOLOFT [Concomitant]

REACTIONS (2)
  - GLOMERULONEPHRITIS ACUTE [None]
  - RENAL FAILURE [None]
